FAERS Safety Report 9905364 (Version 1)
Quarter: 2014Q1

REPORT INFORMATION
  Report Type: Spontaneous
  Country: US (occurrence: None)
  Receive Date: 20140218
  Receipt Date: 20140218
  Transmission Date: 20141002
  Serious: Yes (Other)
  Sender: FDA-Public Use
  Company Number: None

PATIENT
  Age: 44 Year
  Sex: Female
  Weight: 63.5 kg

DRUGS (1)
  1. L- CITRULLINE [Suspect]
     Indication: AMMONIA ABNORMAL
     Dosage: 1 HEAPING TABLESPOON ONCE, ONCE DAILY, TAKEN BY MOUTH
     Route: 048
     Dates: start: 20131101, end: 20140201

REACTIONS (3)
  - Mental disorder [None]
  - General physical condition abnormal [None]
  - Product quality issue [None]
